FAERS Safety Report 25471159 (Version 1)
Quarter: 2025Q2

REPORT INFORMATION
  Report Type: Spontaneous
  Country: CN (occurrence: CN)
  Receive Date: 20250624
  Receipt Date: 20250624
  Transmission Date: 20250717
  Serious: Yes (Other)
  Sender: BEIGENE
  Company Number: CN-BEIGENE-BGN-2025-009772

PATIENT
  Age: 60 Year
  Weight: 52 kg

DRUGS (12)
  1. TISLELIZUMAB [Suspect]
     Active Substance: TISLELIZUMAB
     Indication: Small cell lung cancer
  2. TISLELIZUMAB [Suspect]
     Active Substance: TISLELIZUMAB
     Route: 041
  3. TISLELIZUMAB [Suspect]
     Active Substance: TISLELIZUMAB
     Route: 041
  4. TISLELIZUMAB [Suspect]
     Active Substance: TISLELIZUMAB
  5. ETOPOSIDE [Suspect]
     Active Substance: ETOPOSIDE
     Indication: Small cell lung cancer
     Dosage: 0.1 GRAM, QD, D1-D3
  6. ETOPOSIDE [Suspect]
     Active Substance: ETOPOSIDE
     Dosage: 0.1 GRAM, QD, D1-D3
     Route: 041
  7. ETOPOSIDE [Suspect]
     Active Substance: ETOPOSIDE
     Dosage: 0.1 GRAM, QD, D1-D3
     Route: 041
  8. ETOPOSIDE [Suspect]
     Active Substance: ETOPOSIDE
     Dosage: 0.1 GRAM, QD, D1-D3
  9. CARBOPLATIN [Suspect]
     Active Substance: CARBOPLATIN
     Indication: Small cell lung cancer
  10. CARBOPLATIN [Suspect]
     Active Substance: CARBOPLATIN
     Route: 041
  11. CARBOPLATIN [Suspect]
     Active Substance: CARBOPLATIN
     Route: 041
  12. CARBOPLATIN [Suspect]
     Active Substance: CARBOPLATIN

REACTIONS (1)
  - Myelosuppression [Unknown]
